FAERS Safety Report 9196615 (Version 1)
Quarter: 2013Q1

REPORT INFORMATION
  Report Type: Spontaneous
  Country: DE (occurrence: DE)
  Receive Date: 20130328
  Receipt Date: 20130328
  Transmission Date: 20140127
  Serious: Yes (Hospitalization)
  Sender: FDA-Public Use
  Company Number: DE-UCBSA-081393

PATIENT
  Age: 17 Year
  Sex: Male

DRUGS (3)
  1. LEVETIRACETAM [Suspect]
     Dosage: 3000 MG/DAY
  2. ETHOSUXIMIDE [Concomitant]
  3. VALPROATE [Concomitant]

REACTIONS (2)
  - Convulsion [Recovered/Resolved]
  - Cognitive disorder [Recovering/Resolving]
